FAERS Safety Report 23443556 (Version 1)
Quarter: 2024Q1

REPORT INFORMATION
  Report Type: Report from Study
  Country: IT (occurrence: IT)
  Receive Date: 20240125
  Receipt Date: 20240125
  Transmission Date: 20240409
  Serious: Yes (Death)
  Sender: FDA-Public Use
  Company Number: IT-ABBVIE-5605315

PATIENT
  Age: 79 Year
  Sex: Male

DRUGS (1)
  1. VENETOCLAX [Suspect]
     Active Substance: VENETOCLAX
     Indication: Chronic lymphocytic leukaemia
     Route: 048
     Dates: start: 20230829, end: 202311

REACTIONS (1)
  - Death [Fatal]

NARRATIVE: CASE EVENT DATE: 20231101
